APPROVED DRUG PRODUCT: MELPHALAN HYDROCHLORIDE
Active Ingredient: MELPHALAN HYDROCHLORIDE
Strength: EQ 50MG BASE/VIAL
Dosage Form/Route: INJECTABLE;INJECTION
Application: A203655 | Product #001 | TE Code: AP
Applicant: DR REDDYS LABORATORIES LTD
Approved: Dec 8, 2017 | RLD: No | RS: No | Type: RX